FAERS Safety Report 24934481 (Version 1)
Quarter: 2025Q1

REPORT INFORMATION
  Report Type: Report from Study
  Country: MX (occurrence: MX)
  Receive Date: 20250206
  Receipt Date: 20250206
  Transmission Date: 20250409
  Serious: No
  Sender: EXELIXIS
  Company Number: MX-IPSEN Group, Research and Development-2024-22024

PATIENT

DRUGS (2)
  1. CABOMETYX [Suspect]
     Active Substance: CABOZANTINIB S-MALATE
     Indication: Renal cell carcinoma
     Dosage: 40 MG, QD
     Route: 048
  2. OPDIVO [Concomitant]
     Active Substance: NIVOLUMAB
     Indication: Renal cell carcinoma
     Route: 042

REACTIONS (1)
  - Off label use [Unknown]
